FAERS Safety Report 4730082-9 (Version None)
Quarter: 2005Q3

REPORT INFORMATION
  Report Type: 
  Country: None (occurrence: None)
  Receive Date: 20050729
  Receipt Date: 20050729
  Transmission Date: 20060218
  Serious: Yes (Other)
  Sender: FDA-Public Use
  Company Number: None

PATIENT
  Age: 55 Year
  Sex: Female
  Weight: 78.9259 kg

DRUGS (1)
  1. LEVOTHYROXINE 0.05MG (GENERIC) [Suspect]
     Indication: BASEDOW'S DISEASE
     Dosage: 0.05 MG

REACTIONS (3)
  - AGITATION [None]
  - HYPERHIDROSIS [None]
  - PALPITATIONS [None]
